FAERS Safety Report 23477365 (Version 1)
Quarter: 2024Q1

REPORT INFORMATION
  Report Type: Spontaneous
  Country: JP (occurrence: JP)
  Receive Date: 20240204
  Receipt Date: 20240204
  Transmission Date: 20240410
  Serious: No
  Sender: FDA-Public Use
  Company Number: JP-TAKEDA-2023TJP010661

PATIENT
  Age: 65 Year
  Sex: Male

DRUGS (1)
  1. CABOMETYX [Suspect]
     Active Substance: CABOZANTINIB S-MALATE
     Indication: Renal cancer
     Dosage: 40 MG
     Route: 048
     Dates: start: 20230412

REACTIONS (4)
  - Myalgia [Recovered/Resolved]
  - Hepatic function abnormal [Recovered/Resolved]
  - Eczema [Unknown]
  - Stomatitis [Unknown]

NARRATIVE: CASE EVENT DATE: 20230419
